FAERS Safety Report 6071813-8 (Version None)
Quarter: 2009Q1

REPORT INFORMATION
  Report Type: 
  Country: None (occurrence: None)
  Receive Date: 20090210
  Receipt Date: 20090202
  Transmission Date: 20090719
  Serious: Yes (Other)
  Sender: FDA-Public Use
  Company Number: PHEH2009US01375

PATIENT
  Age: 75 Year
  Sex: Male

DRUGS (5)
  1. ZOMETA [Suspect]
     Indication: MULTIPLE MYELOMA
     Dosage: UNK
     Dates: start: 20060101, end: 20081201
  2. BACLOFEN [Concomitant]
  3. LASIX [Concomitant]
  4. OXYCONTIN [Concomitant]
  5. DEXAMETH [Suspect]

REACTIONS (1)
  - OSTEONECROSIS [None]
